FAERS Safety Report 16225680 (Version 4)
Quarter: 2020Q2

REPORT INFORMATION
  Report Type: Spontaneous
  Country: JP (occurrence: JP)
  Receive Date: 20190422
  Receipt Date: 20200620
  Transmission Date: 20200713
  Serious: Yes (Death, Life-Threatening, Other)
  Sender: FDA-Public Use
  Company Number: JP-AMGEN-JPNSP2019062954

PATIENT
  Age: 62 Year
  Sex: Female
  Weight: 46 kg

DRUGS (12)
  1. CEFEPIME HCL [Concomitant]
     Active Substance: CEFEPIME HYDROCHLORIDE
     Indication: PYREXIA
     Dosage: 0.5 GRAM, QD
     Route: 065
     Dates: start: 20181205, end: 20181219
  2. ACICLOVIR [Concomitant]
     Active Substance: ACYCLOVIR
     Indication: HERPES ZOSTER
     Dosage: 200 MILLIGRAM, QD
     Route: 048
     Dates: start: 20181127, end: 20181219
  3. GRANISETRON [Concomitant]
     Active Substance: GRANISETRON
     Indication: VOMITING
     Dosage: 1 MILLIGRAM, QD
     Route: 065
     Dates: start: 20181218, end: 20181219
  4. FLUCONAZOLE. [Concomitant]
     Active Substance: FLUCONAZOLE
     Indication: SYSTEMIC MYCOSIS
     Dosage: 100 MILLIGRAM, QD
     Route: 048
     Dates: start: 20181127, end: 20181219
  5. KYPROLIS [Suspect]
     Active Substance: CARFILZOMIB
     Indication: PLASMA CELL MYELOMA
     Dosage: 28 MILLIGRAM, QD
     Route: 041
     Dates: start: 20181218, end: 20181219
  6. TAKECAB [Concomitant]
     Active Substance: VONOPRAZAN FUMARATE
     Indication: PROPHYLAXIS AGAINST GASTROINTESTINAL ULCER
     Dosage: 10 MILLIGRAM, QD
     Route: 048
     Dates: start: 20181127, end: 20181219
  7. HICALIQ [Concomitant]
     Active Substance: CALCIUM GLUCONATE\DEXTROSE\MAGNESIUM SULFATE\POTASSIUM ACETATE\POTASSIUM PHOSPHATE, DIBASIC\ZINC SULFATE
     Indication: FEEDING DISORDER
     Dosage: 500 MILLILITER, QD
     Route: 065
     Dates: start: 20181119, end: 20181219
  8. URSODEOXYCHOLIC ACID [Concomitant]
     Active Substance: URSODIOL
     Indication: LIVER DISORDER
     Dosage: 100 MILLIGRAM, Q8H
     Route: 048
     Dates: start: 20181213, end: 20181219
  9. DEXART [Concomitant]
     Active Substance: DEXAMETHASONE SODIUM PHOSPHATE
     Indication: PLASMA CELL MYELOMA
     Dosage: 20 MILLIGRAM, QD
     Route: 065
     Dates: start: 20181218, end: 20181219
  10. TEICOPLANIN [Concomitant]
     Active Substance: TEICOPLANIN
     Indication: PYREXIA
     Dosage: 400 MILLIGRAM, QD
     Route: 065
     Dates: start: 20181211, end: 20181219
  11. CALCITRIOL. [Concomitant]
     Active Substance: CALCITRIOL
     Indication: HYPOCALCAEMIA
     Dosage: 0.25 MICROGRAM, QD
     Route: 048
     Dates: start: 20181213, end: 20181219
  12. GASLON [Concomitant]
     Active Substance: IRSOGLADINE MALEATE
     Indication: PROPHYLAXIS AGAINST GASTROINTESTINAL ULCER
     Dosage: 4 MILLIGRAM, QD
     Route: 048
     Dates: start: 20181127, end: 20181219

REACTIONS (3)
  - Respiratory arrest [Fatal]
  - Cerebellar haemorrhage [Fatal]
  - Hypertension [Recovering/Resolving]

NARRATIVE: CASE EVENT DATE: 20181219
